FAERS Safety Report 5803056-4 (Version None)
Quarter: 2008Q3

REPORT INFORMATION
  Report Type: 
  Country: None (occurrence: None)
  Receive Date: 20080708
  Receipt Date: 20080630
  Transmission Date: 20090109
  Serious: Yes (Hospitalization, Other)
  Sender: FDA-Public Use
  Company Number: FR-JNJFOC-20080700961

PATIENT
  Sex: Male

DRUGS (2)
  1. TOPALGIC [Suspect]
     Indication: TOOTHACHE
     Route: 048
  2. ACETAMINOPHEN AND CODEINE PHOSPHATE [Suspect]
     Indication: TOOTHACHE
     Dosage: FORMULATION: 500 + 30MG
     Route: 048

REACTIONS (4)
  - ABDOMINAL PAIN [None]
  - LETHARGY [None]
  - OVERDOSE [None]
  - SPEECH DISORDER [None]
